FAERS Safety Report 21311106 (Version 1)
Quarter: 2022Q3

REPORT INFORMATION
  Report Type: Spontaneous
  Country: US (occurrence: None)
  Receive Date: 20220909
  Receipt Date: 20220909
  Transmission Date: 20221027
  Serious: No
  Sender: FDA-Public Use
  Company Number: US-FARMAPROD-202201-0078

PATIENT
  Age: 83 Year
  Sex: Female

DRUGS (4)
  1. OXERVATE [Suspect]
     Active Substance: CENEGERMIN-BKBJ
     Indication: Neurotrophic keratopathy
     Route: 047
     Dates: start: 20220105
  2. CYCLOSPORINE IN KLARITY [Concomitant]
  3. AZASITE [Concomitant]
     Active Substance: AZITHROMYCIN MONOHYDRATE
  4. HYPOCHLOROUS ACID [Concomitant]
     Active Substance: HYPOCHLOROUS ACID

REACTIONS (2)
  - Eye irritation [Not Recovered/Not Resolved]
  - Therapy interrupted [Unknown]

NARRATIVE: CASE EVENT DATE: 20220203
